FAERS Safety Report 12938080 (Version 2)
Quarter: 2017Q2

REPORT INFORMATION
  Report Type: Spontaneous
  Country: US (occurrence: US)
  Receive Date: 20161114
  Receipt Date: 20170510
  Transmission Date: 20170830
  Serious: Yes (Death)
  Sender: FDA-Public Use
  Company Number: US-ACADIA PHARMACEUTICALS INC.-ACA-2016-000795

PATIENT
  Age: 79 Year
  Sex: Male

DRUGS (3)
  1. NUPLAZID [Suspect]
     Active Substance: PIMAVANSERIN TARTRATE
     Indication: PARKINSON^S DISEASE
  2. NUPLAZID [Suspect]
     Active Substance: PIMAVANSERIN TARTRATE
     Indication: PSYCHOTIC DISORDER
     Dosage: 34 MG, QD
     Route: 048
     Dates: start: 201608, end: 20170330
  3. NUPLAZID [Suspect]
     Active Substance: PIMAVANSERIN TARTRATE
     Indication: HALLUCINATION

REACTIONS (7)
  - Diarrhoea [Unknown]
  - Hallucination [Recovering/Resolving]
  - Hepatic lesion [Fatal]
  - Confusional state [Unknown]
  - Thrombosis [Fatal]
  - Blood glucose increased [Fatal]
  - Rash [Recovering/Resolving]

NARRATIVE: CASE EVENT DATE: 2016
